FAERS Safety Report 5054073-6 (Version None)
Quarter: 2006Q2

REPORT INFORMATION
  Report Type: 
  Country: None (occurrence: None)
  Receive Date: 20060616
  Receipt Date: 20050622
  Transmission Date: 20061013
  Serious: Yes (Hospitalization)
  Sender: FDA-Public Use
  Company Number: 200513798US

PATIENT
  Sex: Female

DRUGS (9)
  1. INSULIN GLARGINE (LANTUS) SLUTION FOR INJECTION [Suspect]
     Indication: DIABETES MELLITUS NON-INSULIN-DEPENDENT
     Dosage: 42 U QAM SC
     Route: 058
     Dates: start: 20050502
  2. LANTUS [Suspect]
     Indication: DIABETES MELLITUS NON-INSULIN-DEPENDENT
     Dosage: 60 U
     Dates: end: 20050331
  3. LANTUS [Suspect]
     Indication: DIABETES MELLITUS NON-INSULIN-DEPENDENT
     Dosage: 52 U
     Dates: start: 20050331, end: 20050502
  4. LIPITOR [Concomitant]
  5. HYDROCHLOROTHIAZIDE [Concomitant]
  6. LOSARTAN POTASSIUM (HYZAAR) [Concomitant]
  7. SYNTHROID [Concomitant]
  8. ACETYLSALICYLIC ACID SRT [Concomitant]
  9. DEMADEX [Concomitant]

REACTIONS (10)
  - BLOOD GLUCOSE DECREASED [None]
  - BLOOD GLUCOSE INCREASED [None]
  - FALL [None]
  - HYPERHIDROSIS [None]
  - HYPOGLYCAEMIA [None]
  - LOSS OF CONSCIOUSNESS [None]
  - NASOPHARYNGITIS [None]
  - NERVOUSNESS [None]
  - SYNCOPE [None]
  - TREMOR [None]
